FAERS Safety Report 13524021 (Version 2)
Quarter: 2018Q1

REPORT INFORMATION
  Report Type: Spontaneous
  Country: US (occurrence: US)
  Receive Date: 20170508
  Receipt Date: 20180330
  Transmission Date: 20180508
  Serious: No
  Sender: FDA-Public Use
  Company Number: US-VIFOR (INTERNATIONAL) INC.-VIT-2016-06970

PATIENT
  Age: 69 Year
  Sex: Female

DRUGS (6)
  1. SODIUM BICARBONATE. [Concomitant]
     Active Substance: SODIUM BICARBONATE
  2. VELTASSA [Suspect]
     Active Substance: PATIROMER
     Indication: HYPERKALAEMIA
     Route: 048
     Dates: start: 20160916
  3. VELTASSA [Suspect]
     Active Substance: PATIROMER
     Route: 048
     Dates: start: 201609
  4. AMLODIPINE [Concomitant]
     Active Substance: AMLODIPINE BESYLATE
  5. RAYALDEE [Concomitant]
     Active Substance: CALCIFEDIOL
  6. COD-LIVER OIL [Concomitant]
     Active Substance: FISH OIL

REACTIONS (7)
  - Vomiting [Unknown]
  - Diarrhoea [Not Recovered/Not Resolved]
  - Product use complaint [Unknown]
  - Abdominal discomfort [Unknown]
  - Nausea [Unknown]
  - Product preparation error [Unknown]
  - Flatulence [Not Recovered/Not Resolved]

NARRATIVE: CASE EVENT DATE: 20161015
